FAERS Safety Report 13745492 (Version 2)
Quarter: 2017Q3

REPORT INFORMATION
  Report Type: Report from Study
  Country: AU (occurrence: AU)
  Receive Date: 20170712
  Receipt Date: 20170803
  Transmission Date: 20171127
  Serious: Yes (Other)
  Sender: FDA-Public Use
  Company Number: PHHY2017AU101866

PATIENT
  Age: 54 Year
  Sex: Female

DRUGS (3)
  1. VITAMIN D [Concomitant]
     Active Substance: CHOLECALCIFEROL
     Indication: PRODUCT USED FOR UNKNOWN INDICATION
     Route: 065
  2. GILENYA [Suspect]
     Active Substance: FINGOLIMOD HYDROCHLORIDE
     Indication: RELAPSING-REMITTING MULTIPLE SCLEROSIS
     Dosage: UNK
     Route: 048
     Dates: start: 201606
  3. LOXALATE [Concomitant]
     Active Substance: ESCITALOPRAM OXALATE
     Indication: PRODUCT USED FOR UNKNOWN INDICATION
     Dosage: UNK
     Route: 065
     Dates: start: 201511

REACTIONS (17)
  - Sleep disorder [Unknown]
  - Heart rate decreased [Unknown]
  - Psychiatric symptom [Unknown]
  - Heart rate increased [Unknown]
  - Concomitant disease aggravated [Unknown]
  - Nausea [Not Recovered/Not Resolved]
  - Decreased activity [Unknown]
  - Back pain [Unknown]
  - Eye pain [Unknown]
  - Weight increased [Unknown]
  - Ocular discomfort [Unknown]
  - Malaise [Unknown]
  - Blepharospasm [Unknown]
  - Dysarthria [Not Recovered/Not Resolved]
  - Arthralgia [Unknown]
  - Influenza [Recovering/Resolving]
  - Memory impairment [Not Recovered/Not Resolved]

NARRATIVE: CASE EVENT DATE: 2016
